FAERS Safety Report 19275025 (Version 1)
Quarter: 2021Q2

REPORT INFORMATION
  Report Type: Spontaneous
  Country: CA (occurrence: CA)
  Receive Date: 20210519
  Receipt Date: 20210519
  Transmission Date: 20210717
  Serious: Yes (Other)
  Sender: FDA-Public Use
  Company Number: CA-SAMSUNG BIOEPIS-SB-2020-11469

PATIENT
  Age: 22 Year
  Sex: Male

DRUGS (3)
  1. SOLU?MEDROL [Concomitant]
     Active Substance: METHYLPREDNISOLONE SODIUM SUCCINATE
     Indication: PRODUCT USED FOR UNKNOWN INDICATION
     Dosage: UNKNOWN
     Route: 065
  2. INFLIXIMAB [Suspect]
     Active Substance: INFLIXIMAB
     Indication: COLITIS ULCERATIVE
     Route: 042
  3. DESOXIMETASONE. [Concomitant]
     Active Substance: DESOXIMETASONE
     Indication: PRODUCT USED FOR UNKNOWN INDICATION
     Dosage: UNKNOWN
     Route: 065

REACTIONS (14)
  - Off label use [Recovered/Resolved]
  - Drug level decreased [Recovered/Resolved]
  - Product use issue [Recovered/Resolved]
  - Blood pressure systolic increased [Recovered/Resolved]
  - Avulsion fracture [Recovered/Resolved]
  - Heart rate irregular [Recovered/Resolved]
  - Condition aggravated [Recovered/Resolved]
  - Skin plaque [Recovered/Resolved]
  - Poor venous access [Recovered/Resolved]
  - Intentional product use issue [Recovered/Resolved]
  - Infusion site erythema [Recovered/Resolved]
  - Heart rate decreased [Recovered/Resolved]
  - Inappropriate schedule of product administration [Recovered/Resolved]
  - Pruritus [Recovered/Resolved]
